FAERS Safety Report 5704533-7 (Version None)
Quarter: 2008Q2

REPORT INFORMATION
  Report Type: 
  Country: None (occurrence: None)
  Receive Date: 20080414
  Receipt Date: 20080402
  Transmission Date: 20081010
  Serious: Yes (Hospitalization)
  Sender: FDA-Public Use
  Company Number: GB-ROCHE-549421

PATIENT
  Sex: Female
  Weight: 92 kg

DRUGS (14)
  1. ORLISTAT [Suspect]
     Indication: OBESITY
     Route: 048
     Dates: start: 20071026, end: 20080215
  2. BISOPROLOL FUMARATE [Concomitant]
     Indication: HYPERTENSION
     Dosage: START DATE BEFORE ORLISTAT
     Route: 048
  3. ASPIRIN [Concomitant]
     Dosage: START DATE BEFORE ORLISTAT
     Route: 048
  4. MELOXICAM [Concomitant]
     Indication: ARTHRITIS
     Dosage: START DATE BEFORE ORLISTAT
     Route: 048
  5. HYDROXYCHLOROQUINE [Concomitant]
     Indication: ARTHRITIS
     Dosage: START DATE REPORTED AS BEFORE ORLISTAT
     Route: 048
  6. LANSOPRAZOLE [Concomitant]
     Dosage: DOSING AMOUNT REPORTED AS 30 AND START DATE BEFORE ORLISTAT
     Route: 048
  7. TRAMADOL HCL [Concomitant]
     Dosage: DOSING AMOUNT REPORTED AS 50-100 QID AND START DATE BEFORE ORLISTAT
     Route: 048
  8. PARACETAMOL [Concomitant]
     Dosage: DOSING REGIME REPORTED AS 500 2 QID AND START DATE BEFORE ORLISTAT
     Route: 048
  9. BUSCOPAN [Concomitant]
     Dosage: COMPLETE REPORTED DOSING REGIME: 10MG 2 QID PRN AND START DATE BEFORE ORLISTAT
     Route: 048
  10. AMITRIPTYLINE HCL [Concomitant]
     Dosage: DOSING FREQUENCY REPORTED AS 1 NOCTE AND START DATE BEFORE ORLISTAT
     Route: 048
  11. GTN SPRAY [Concomitant]
     Dosage: START DATE BEFORE ORLISTAT
  12. CETIRIZINE HCL [Concomitant]
     Dosage: DOSING REGIME REPORTED AS 10MG MANE PRN AND START DATE BEFORE ORLISTAT
     Route: 048
  13. PRAVASTATIN [Concomitant]
     Dosage: DOSING REGIME REPORTED AS 40MG NOCTE AND START DATE BEFORE ORLISTAT
     Route: 048
  14. SULBUTIAMINE [Concomitant]
     Dosage: START DATE BEFORE ORLISTAT
     Route: 048

REACTIONS (3)
  - ABDOMINAL PAIN [None]
  - ILL-DEFINED DISORDER [None]
  - PYREXIA [None]
